FAERS Safety Report 9626516 (Version 1)
Quarter: 2013Q4

REPORT INFORMATION
  Report Type: Spontaneous
  Country: None (occurrence: US)
  Receive Date: 20131016
  Receipt Date: 20131016
  Transmission Date: 20140711
  Serious: Yes (Other)
  Sender: FDA-Public Use
  Company Number: US-TEVA-437623USA

PATIENT
  Sex: Female

DRUGS (1)
  1. TRISENOX [Suspect]

REACTIONS (2)
  - Electrocardiogram QT prolonged [Unknown]
  - Rash [Unknown]
